FAERS Safety Report 21340723 (Version 1)
Quarter: 2022Q3

REPORT INFORMATION
  Report Type: Spontaneous
  Country: DE (occurrence: DE)
  Receive Date: 20220916
  Receipt Date: 20220916
  Transmission Date: 20221027
  Serious: Yes (Death, Hospitalization, Other)
  Sender: FDA-Public Use
  Company Number: DE-CELLTRION INC.-2022DE014734

PATIENT

DRUGS (7)
  1. RITUXIMAB [Suspect]
     Active Substance: RITUXIMAB
     Indication: Burkitt^s leukaemia
  2. DEXAMETHASONE [Suspect]
     Active Substance: DEXAMETHASONE
     Indication: Burkitt^s leukaemia
  3. VINCRISTINE [Suspect]
     Active Substance: VINCRISTINE
     Indication: Burkitt^s leukaemia
  4. IFOSFAMIDE [Suspect]
     Active Substance: IFOSFAMIDE
     Indication: Burkitt^s leukaemia
  5. METHOTREXATE [Suspect]
     Active Substance: METHOTREXATE
     Indication: Burkitt^s leukaemia
     Dosage: HIGH DOSE
  6. CYTARABINE [Suspect]
     Active Substance: CYTARABINE
     Indication: Burkitt^s leukaemia
  7. ETOPOSIDE [Suspect]
     Active Substance: ETOPOSIDE
     Indication: Burkitt^s leukaemia

REACTIONS (4)
  - Burkitt^s lymphoma [Fatal]
  - Disease recurrence [Fatal]
  - Condition aggravated [Fatal]
  - Acute kidney injury [Fatal]
